FAERS Safety Report 5789390-5 (Version None)
Quarter: 2008Q2

REPORT INFORMATION
  Report Type: 
  Country: None (occurrence: None)
  Receive Date: 20080626
  Receipt Date: 20080130
  Transmission Date: 20081010
  Serious: No
  Sender: FDA-Public Use
  Company Number: US-ASTRAZENECA-2008UW02110

PATIENT
  Age: 80 Year
  Sex: Female
  Weight: 83.5 kg

DRUGS (9)
  1. PULMICORT FLEXHALER [Suspect]
     Indication: ASTHMA
     Dosage: 180 MCG 2 PUFFS ONCE OR TWICE A DAY
     Route: 055
     Dates: start: 20070601
  2. SINGULAIR [Concomitant]
  3. AVAPRO [Concomitant]
  4. ZOCOR [Concomitant]
  5. EVISTA [Concomitant]
  6. AMBIEN [Concomitant]
  7. HYDROCHLOROTHIAZIDE [Concomitant]
  8. TOPROL-XL [Concomitant]
     Route: 048
  9. PREVACID [Concomitant]

REACTIONS (5)
  - BRONCHIAL DISORDER [None]
  - HYPERSENSITIVITY [None]
  - NASOPHARYNGITIS [None]
  - PYREXIA [None]
  - RESPIRATORY DISORDER [None]
